FAERS Safety Report 11406825 (Version 7)
Quarter: 2018Q1

REPORT INFORMATION
  Report Type: Report from Study
  Country: CA (occurrence: CA)
  Receive Date: 20150821
  Receipt Date: 20180216
  Transmission Date: 20180508
  Serious: Yes (Hospitalization)
  Sender: FDA-Public Use
  Company Number: CA-TAKEDA-2015TUS010928

PATIENT
  Age: 70 Year
  Sex: Male

DRUGS (7)
  1. IRON [Concomitant]
     Active Substance: IRON
     Dosage: UNK
  2. VEDOLIZUMAB [Suspect]
     Active Substance: VEDOLIZUMAB
     Indication: COLITIS ULCERATIVE
     Dosage: 300 MG, UNK
     Route: 042
     Dates: start: 20150706
  3. PREDNISONE. [Concomitant]
     Active Substance: PREDNISONE
     Dosage: UNK
  4. VEDOLIZUMAB [Suspect]
     Active Substance: VEDOLIZUMAB
     Dosage: 300 MG, UNK
     Route: 042
     Dates: start: 20171124
  5. PREDNISONE. [Concomitant]
     Active Substance: PREDNISONE
     Dosage: 40 MG, UNK
     Dates: start: 20150427
  6. VEDOLIZUMAB [Suspect]
     Active Substance: VEDOLIZUMAB
     Dosage: 300 MG, Q4WEEKS
     Route: 042
     Dates: start: 20160224
  7. LASIX [Concomitant]
     Active Substance: FUROSEMIDE
     Dosage: 20 MG, QD

REACTIONS (6)
  - Fatigue [Unknown]
  - Anaemia [Not Recovered/Not Resolved]
  - Off label use [Unknown]
  - Therapeutic response decreased [Unknown]
  - Vomiting [Recovered/Resolved]
  - Clostridium difficile infection [Unknown]

NARRATIVE: CASE EVENT DATE: 20150731
